FAERS Safety Report 16150767 (Version 2)
Quarter: 2019Q2

REPORT INFORMATION
  Report Type: Spontaneous
  Country: PT (occurrence: PT)
  Receive Date: 20190403
  Receipt Date: 20190504
  Transmission Date: 20190711
  Serious: Yes (Other)
  Sender: FDA-Public Use
  Company Number: PHHY2019PT055593

PATIENT
  Sex: Female

DRUGS (1)
  1. AMOXICILLIN+CLAVULANATE SANDOZ [Suspect]
     Active Substance: AMOXICILLIN\CLAVULANATE POTASSIUM
     Indication: PRODUCT USED FOR UNKNOWN INDICATION
     Dosage: 1000 MG, UNK
     Route: 065

REACTIONS (4)
  - Rash erythematous [Unknown]
  - Drug hypersensitivity [Unknown]
  - Dysphagia [Unknown]
  - Throat tightness [Unknown]
